FAERS Safety Report 24875036 (Version 1)
Quarter: 2025Q1

REPORT INFORMATION
  Report Type: Spontaneous
  Country: US (occurrence: US)
  Receive Date: 20250122
  Receipt Date: 20250122
  Transmission Date: 20250408
  Serious: Yes (Death, Other)
  Sender: INCYTE
  Company Number: US-INCYTE CORPORATION-2025IN000645

PATIENT

DRUGS (1)
  1. JAKAFI [Suspect]
     Active Substance: RUXOLITINIB
     Indication: Polycythaemia vera
     Dosage: 10 MILLIGRAM, QPM (EVERY EVENING)
     Route: 048
     Dates: start: 2015

REACTIONS (1)
  - Death [Fatal]
